FAERS Safety Report 5266330-9 (Version None)
Quarter: 2007Q1

REPORT INFORMATION
  Report Type: 
  Country: None (occurrence: None)
  Receive Date: 20070315
  Receipt Date: 20070307
  Transmission Date: 20070707
  Serious: Yes (Hospitalization)
  Sender: FDA-Public Use
  Company Number: US-AVENTIS-200711611US

PATIENT
  Sex: Female

DRUGS (22)
  1. LANTUS [Suspect]
     Dates: start: 20010101
  2. HUMULIN 70/30 [Concomitant]
     Dosage: DOSE: UNK
  3. NOVOLOG [Concomitant]
     Dosage: DOSE: UNK
  4. HUMULIN R [Concomitant]
     Dosage: DOSE: UNK
  5. METFORMIN HCL [Concomitant]
     Dosage: DOSE: UNK
  6. AVANDIA [Concomitant]
     Dosage: DOSE: UNK
  7. LIPITOR [Concomitant]
     Dosage: DOSE: UNK
  8. DICYCLOMINE [Concomitant]
     Dosage: DOSE: UNK
  9. PROTONIX [Concomitant]
     Dosage: DOSE: UNK
  10. NEURONTIN [Concomitant]
     Dosage: DOSE: UNK
  11. LISINOPRIL [Concomitant]
     Dosage: DOSE: UNK
  12. ATENOLOL [Concomitant]
     Dosage: DOSE: UNK
  13. XANAX [Concomitant]
     Dosage: DOSE: UNK
  14. AMBIEN [Concomitant]
     Dosage: DOSE: UNK
  15. ZOLOFT [Concomitant]
     Dosage: DOSE: UNK
  16. NORVASC [Concomitant]
     Dosage: DOSE: UNK
  17. SUCRALFATE [Concomitant]
     Dosage: DOSE: UNK
  18. ASPIRIN [Concomitant]
  19. PRILOSEC                           /00661201/ [Concomitant]
     Dosage: DOSE: UNK
  20. HYDROXYZINE [Concomitant]
     Dosage: DOSE: UNK
  21. IMITREX [Concomitant]
     Dosage: DOSE: UNK
  22. CLOTRIMAZOLE [Concomitant]
     Dosage: DOSE: UNK

REACTIONS (6)
  - BLOOD GLUCOSE DECREASED [None]
  - CRYING [None]
  - DRUG INEFFECTIVE [None]
  - HYPERGLYCAEMIA [None]
  - INJECTION SITE IRRITATION [None]
  - SUICIDAL IDEATION [None]
